FAERS Safety Report 9458941 (Version 1)
Quarter: 2013Q3

REPORT INFORMATION
  Report Type: Report from Study
  Country: DE (occurrence: DE)
  Receive Date: 20130814
  Receipt Date: 20130814
  Transmission Date: 20140515
  Serious: Yes (Hospitalization)
  Sender: FDA-Public Use
  Company Number: DE-PFIZER INC-2013231504

PATIENT
  Sex: Female
  Weight: 75 kg

DRUGS (8)
  1. EXEMESTANE [Suspect]
     Dosage: UNK
     Dates: start: 20130416, end: 20130416
  2. EXEMESTANE [Suspect]
     Dosage: UNK
     Dates: start: 20130515
  3. AFINITOR [Suspect]
     Indication: BREAST CANCER METASTATIC
     Dosage: 10 MG, 1X/DAY
     Route: 048
     Dates: start: 20130416, end: 20130416
  4. AFINITOR [Suspect]
     Dosage: 10 MG, 1X/DAY
     Route: 048
     Dates: start: 20130515, end: 20130528
  5. AFINITOR [Suspect]
     Dosage: 10 MG, 1X/DAY
     Route: 048
     Dates: start: 20130605, end: 20130718
  6. THYRONAJOD [Concomitant]
     Dosage: UNK
     Dates: start: 199301
  7. CALCIMAGON [Concomitant]
     Dosage: UNK
     Dates: start: 201208
  8. LOSAR TEVA [Concomitant]
     Dosage: UNK
     Dates: start: 199301

REACTIONS (1)
  - Weight decreased [Recovering/Resolving]
